FAERS Safety Report 18592677 (Version 3)
Quarter: 2021Q1

REPORT INFORMATION
  Report Type: Report from Study
  Country: NO (occurrence: NO)
  Receive Date: 20201208
  Receipt Date: 20210223
  Transmission Date: 20210419
  Serious: Yes (Hospitalization)
  Sender: FDA-Public Use
  Company Number: NVSC2020NO319210

PATIENT
  Age: 72 Year
  Sex: Male
  Weight: 77 kg

DRUGS (8)
  1. MEKINIST [Suspect]
     Active Substance: TRAMETINIB DIMETHYL SULFOXIDE
     Indication: MALIGNANT MELANOMA
     Dosage: 2 MG, QD (2 MG X 1)
     Route: 048
     Dates: start: 20191016
  2. CLEXANE [Concomitant]
     Active Substance: ENOXAPARIN SODIUM
     Indication: PULMONARY EMBOLISM
     Dosage: 60 MG, BID (60 MG X2)
     Route: 058
     Dates: start: 20200107, end: 20200402
  3. RITUXIMAB. [Concomitant]
     Active Substance: RITUXIMAB
     Indication: RHEUMATOID ARTHRITIS
     Dosage: UNK (EVERY 6TH MONTH) (LAST DOSE WAS GIVEN IN OTHER HOSPITAL BEFOR IN 27 FEB 2019 AND 22 JAN 2020) T
     Route: 042
     Dates: start: 2015
  4. CRESTOR [Concomitant]
     Active Substance: ROSUVASTATIN CALCIUM
     Indication: PRODUCT USED FOR UNKNOWN INDICATION
     Dosage: 10 MG, QD
     Route: 065
     Dates: start: 20201031
  5. RAMIPRIL. [Concomitant]
     Active Substance: RAMIPRIL
     Indication: HYPERTENSION
     Dosage: 10 MG, QD
     Route: 065
     Dates: start: 201512
  6. BACTRIM [Concomitant]
     Active Substance: SULFAMETHOXAZOLE\TRIMETHOPRIM
     Indication: PNEUMONIA
     Dosage: 2 DF, BID (2 TABLET SATURDAY AND SUNDAY)
     Route: 065
     Dates: start: 20200430
  7. TAFINLAR [Suspect]
     Active Substance: DABRAFENIB MESYLATE
     Indication: MALIGNANT MELANOMA
     Dosage: 75 MG, BID (75 MG, 2X2)
     Route: 048
     Dates: start: 20191016
  8. DIPRASORIN [Concomitant]
     Indication: PRODUCT USED FOR UNKNOWN INDICATION
     Dosage: 25 MG, BID
     Route: 065
     Dates: start: 20201030

REACTIONS (14)
  - Pyrexia [Recovered/Resolved]
  - Epilepsy [Recovered/Resolved]
  - Contusion [Unknown]
  - Pyrexia [Recovered/Resolved]
  - Fibrin D dimer increased [Unknown]
  - Chest injury [Recovered/Resolved]
  - C-reactive protein increased [Unknown]
  - Haematoma [Unknown]
  - Fall [Recovered/Resolved]
  - Injury [Unknown]
  - Epilepsy [Recovered/Resolved]
  - Pyrexia [Recovered/Resolved]
  - Pain [Recovered/Resolved]
  - Haemoglobin decreased [Unknown]

NARRATIVE: CASE EVENT DATE: 20200331
